FAERS Safety Report 7234899-0 (Version None)
Quarter: 2011Q1

REPORT INFORMATION
  Report Type: 
  Country: None (occurrence: None)
  Receive Date: 20110120
  Receipt Date: 20110111
  Transmission Date: 20110831
  Serious: No
  Sender: FDA-Public Use
  Company Number: US-PFIZER INC-2011006254

PATIENT
  Sex: Female
  Weight: 45.4 kg

DRUGS (2)
  1. LISINOPRIL AND HYDROCHLOROTHIAZIDE [Concomitant]
     Indication: HYPERTENSION
     Dosage: 20/12.5 MG, UNK
  2. PREMARIN [Suspect]
     Indication: VULVOVAGINAL DRYNESS
     Dosage: 0.625 MG, 1 TO 3 TIMES PER WEEK
     Route: 067
     Dates: start: 20101213, end: 20110106

REACTIONS (2)
  - PAIN [None]
  - DRUG INEFFECTIVE [None]
